FAERS Safety Report 14988648 (Version 1)
Quarter: 2018Q2

REPORT INFORMATION
  Report Type: Spontaneous
  Country: US (occurrence: US)
  Receive Date: 20180516
  Receipt Date: 20180516
  Transmission Date: 20180711
  Serious: Yes (Life-Threatening, Hospitalization, Other)
  Sender: FDA-Public Use
  Company Number: None

PATIENT
  Age: 29 Year
  Sex: Female
  Weight: 64.41 kg

DRUGS (1)
  1. MIRENA [Suspect]
     Active Substance: LEVONORGESTREL
     Dates: start: 20160105

REACTIONS (6)
  - Abdominal distension [None]
  - Pregnancy test positive [None]
  - Ectopic pregnancy [None]
  - Pregnancy with contraceptive device [None]
  - Breast tenderness [None]
  - Abdominal pain [None]

NARRATIVE: CASE EVENT DATE: 20180328
